FAERS Safety Report 5083327-2 (Version None)
Quarter: 2006Q3

REPORT INFORMATION
  Report Type: 
  Country: None (occurrence: None)
  Receive Date: 20060818
  Receipt Date: 20060725
  Transmission Date: 20061208
  Serious: Yes (Hospitalization)
  Sender: FDA-Public Use
  Company Number: US-AMGEN-US187771

PATIENT
  Sex: Female

DRUGS (7)
  1. ENBREL [Suspect]
     Indication: RHEUMATOID ARTHRITIS
     Route: 058
     Dates: start: 19991022
  2. METHOTREXATE [Concomitant]
     Dates: start: 19990101
  3. FOLIC ACID [Concomitant]
     Dates: start: 19990101
  4. PREDNISONE [Concomitant]
     Dates: start: 19990101
  5. ACTONEL [Concomitant]
     Dates: start: 20010101
  6. ULTRAM [Concomitant]
     Dates: start: 20060110
  7. ARTHROTEC [Concomitant]
     Dates: start: 20010101

REACTIONS (5)
  - CONDITION AGGRAVATED [None]
  - INJECTION SITE IRRITATION [None]
  - INJECTION SITE PAIN [None]
  - OSTEOARTHRITIS [None]
  - WRONG TECHNIQUE IN DRUG USAGE PROCESS [None]
